FAERS Safety Report 15144961 (Version 2)
Quarter: 2019Q2

REPORT INFORMATION
  Report Type: Report from Study
  Country: US (occurrence: US)
  Receive Date: 20180713
  Receipt Date: 20190603
  Transmission Date: 20190711
  Serious: Yes (Other)
  Sender: FDA-Public Use
  Company Number: US-SA-2018SA179241

PATIENT
  Sex: Female

DRUGS (1)
  1. INSULIN GLARGINE [Suspect]
     Active Substance: INSULIN GLARGINE
     Dosage: UNK, UNK
     Route: 058

REACTIONS (7)
  - Product dose omission [Unknown]
  - Blood glucose abnormal [Unknown]
  - Myocardial infarction [Unknown]
  - Drug ineffective [Unknown]
  - Blood pressure increased [Unknown]
  - Eye disorder [Unknown]
  - Seizure [Unknown]
